FAERS Safety Report 14211970 (Version 3)
Quarter: 2017Q4

REPORT INFORMATION
  Report Type: Spontaneous
  Country: GB (occurrence: GB)
  Receive Date: 20171122
  Receipt Date: 20171201
  Transmission Date: 20180321
  Serious: Yes (Other)
  Sender: FDA-Public Use
  Company Number: GB-MYLANLABS-2017M1073949

PATIENT
  Sex: Female

DRUGS (1)
  1. CLOZARIL [Suspect]
     Active Substance: CLOZAPINE
     Indication: SCHIZOPHRENIA
     Dosage: UNK
     Route: 048
     Dates: start: 20030730

REACTIONS (11)
  - Terminal state [Unknown]
  - Dementia [Unknown]
  - Infection [Unknown]
  - Discomfort [Unknown]
  - Contraindicated product administered [Unknown]
  - Hydrocephalus [Unknown]
  - Poor venous access [Unknown]
  - Bedridden [Unknown]
  - Asthenia [Unknown]
  - Off label use [Unknown]
  - Seizure [Unknown]

NARRATIVE: CASE EVENT DATE: 2017
